FAERS Safety Report 9323743 (Version 2)
Quarter: 2013Q2

REPORT INFORMATION
  Report Type: Report from Study
  Country: CH (occurrence: CH)
  Receive Date: 20130603
  Receipt Date: 20130625
  Transmission Date: 20140414
  Serious: Yes (Death, Hospitalization)
  Sender: FDA-Public Use
  Company Number: CH-ELI_LILLY_AND_COMPANY-CH201305008173

PATIENT
  Sex: Female

DRUGS (13)
  1. TERIPARATIDE [Suspect]
     Indication: OSTEOPOROSIS
     Dosage: 20 UG, QD
     Route: 058
     Dates: start: 20120625, end: 20130503
  2. PLAVIX [Suspect]
     Dosage: 75MG/DAILY
     Route: 048
  3. PANTOPRAZOLE [Suspect]
     Dosage: 20 MG, QD
     Route: 048
  4. TOREM [Concomitant]
     Dosage: 10MG/D
     Route: 048
  5. BETASERC [Concomitant]
     Dosage: 24MG/D
     Route: 048
  6. LEXOTANIL [Concomitant]
     Dosage: 1.5MG TAB 0.5/DAY
     Route: 048
  7. DIPIPERON [Concomitant]
     Dosage: 40MG TAB, 0.5/D
     Route: 048
  8. NORVASC [Concomitant]
     Dosage: 5MG EACH MORNING
  9. NORVASC [Concomitant]
     Dosage: 2.5 MG, EACH EVENING
  10. DUROGESIC [Concomitant]
     Dosage: Q 3 DAY
     Route: 062
  11. TRAMAL [Concomitant]
     Dosage: GTTS, PRN
     Route: 048
  12. RESYL [Concomitant]
     Dosage: GTTS, PRN
     Route: 048
  13. ARANESP [Concomitant]
     Dosage: 40MCG/WEEK
     Route: 058

REACTIONS (1)
  - Pneumonia [Fatal]
